FAERS Safety Report 9195122 (Version 1)
Quarter: 2013Q1

REPORT INFORMATION
  Report Type: Spontaneous
  Country: US (occurrence: US)
  Receive Date: 20130328
  Receipt Date: 20130328
  Transmission Date: 20140127
  Serious: No
  Sender: FDA-Public Use
  Company Number: US-ALLERGAN-1301027US

PATIENT
  Age: 46 Year
  Sex: Female

DRUGS (4)
  1. LATISSE 0.03% [Suspect]
     Indication: GROWTH OF EYELASHES
     Dosage: 2 GTT, UNK
     Route: 061
     Dates: start: 201212
  2. LATISSE 0.03% [Suspect]
     Dosage: UNK
     Dates: start: 2009
  3. LEVOTHYROXINE [Concomitant]
     Indication: THYROID DISORDER
     Dosage: 0.125 MG, QD
     Route: 048
  4. CYTOMEL [Concomitant]
     Indication: THYROID DISORDER
     Dosage: 20 ?G, QD
     Route: 048

REACTIONS (3)
  - Foreign body sensation in eyes [Unknown]
  - Dry eye [Unknown]
  - Drug ineffective [Unknown]
